FAERS Safety Report 12887741 (Version 1)
Quarter: 2016Q4

REPORT INFORMATION
  Report Type: Spontaneous
  Country: US (occurrence: US)
  Receive Date: 20161027
  Receipt Date: 20161027
  Transmission Date: 20170207
  Serious: No
  Sender: FDA-Public Use
  Company Number: US-009507513-1610USA004537

PATIENT
  Sex: Female

DRUGS (2)
  1. NUVARING [Suspect]
     Active Substance: ETHINYL ESTRADIOL\ETONOGESTREL
     Indication: CONTRACEPTION
     Dosage: 3 WEEKS IN, 1 WEEK OUT(QM)
     Route: 067
     Dates: start: 20160209, end: 20161009
  2. NUVARING [Suspect]
     Active Substance: ETHINYL ESTRADIOL\ETONOGESTREL
     Indication: MENSTRUATION NORMAL

REACTIONS (5)
  - Nausea [Unknown]
  - Device expulsion [Unknown]
  - Pain [Unknown]
  - Irritability [Unknown]
  - Micturition urgency [Unknown]

NARRATIVE: CASE EVENT DATE: 20161009
